FAERS Safety Report 6435036-2 (Version None)
Quarter: 2009Q4

REPORT INFORMATION
  Report Type: 
  Country: None (occurrence: None)
  Receive Date: 20091110
  Receipt Date: 20091102
  Transmission Date: 20100525
  Serious: Yes (Other)
  Sender: FDA-Public Use
  Company Number: CN-JNJFOC-20091100702

PATIENT
  Age: 30 Year
  Sex: Male

DRUGS (2)
  1. DAKTARIN [Suspect]
     Route: 061
     Dates: start: 20091026, end: 20091029
  2. DAKTARIN [Suspect]
     Indication: PRURITUS
     Route: 061
     Dates: start: 20091026, end: 20091029

REACTIONS (1)
  - ERECTILE DYSFUNCTION [None]
